FAERS Safety Report 26206309 (Version 1)
Quarter: 2025Q4

REPORT INFORMATION
  Report Type: Spontaneous
  Country: EU (occurrence: EU)
  Receive Date: 20251229
  Receipt Date: 20251229
  Transmission Date: 20260118
  Serious: Yes (Other)
  Sender: MERCK SHARP & DOHME LLC
  Company Number: EU-PFIZER INC-202500236470

PATIENT
  Age: 34 Year
  Sex: Male

DRUGS (5)
  1. PEMBROLIZUMAB [Suspect]
     Active Substance: PEMBROLIZUMAB
     Indication: Metastases to lung
     Dosage: UNK
  2. INLYTA [Suspect]
     Active Substance: AXITINIB
     Indication: Alveolar soft part sarcoma
     Dosage: 5 MG, 1X/DAY
  3. INLYTA [Suspect]
     Active Substance: AXITINIB
     Indication: Alveolar soft part sarcoma
     Dosage: 5 MG, 2X/DAY
  4. INLYTA [Suspect]
     Active Substance: AXITINIB
     Indication: Alveolar soft part sarcoma
     Dosage: 3 MG, 2X/DAY
  5. INLYTA [Suspect]
     Active Substance: AXITINIB
     Indication: Alveolar soft part sarcoma
     Dosage: 5 MG, 2X/DAY

REACTIONS (6)
  - Metastases to lung [Unknown]
  - Abdominal pain [Not Recovered/Not Resolved]
  - Malignant neoplasm progression [Unknown]
  - Abdominal discomfort [Not Recovered/Not Resolved]
  - Diarrhoea [Not Recovered/Not Resolved]
  - Off label use [Unknown]
